FAERS Safety Report 22367179 (Version 1)
Quarter: 2023Q2

REPORT INFORMATION
  Report Type: Spontaneous
  Country: EU (occurrence: EU)
  Receive Date: 20230525
  Receipt Date: 20230525
  Transmission Date: 20230722
  Serious: Yes (Other)
  Sender: FDA-Public Use
  Company Number: None

PATIENT
  Age: 23 Year
  Sex: Male

DRUGS (4)
  1. BUPRENORPHINE [Suspect]
     Active Substance: BUPRENORPHINE
     Dosage: BUPRENORPHINE CP 8 MG
     Route: 058
     Dates: start: 20230201, end: 20230201
  2. COCAINE [Suspect]
     Active Substance: COCAINE
     Route: 040
  3. COCAINE [Suspect]
     Active Substance: COCAINE
     Route: 045
  4. UNSPECIFIED INGREDIENT [Suspect]
     Active Substance: UNSPECIFIED INGREDIENT

REACTIONS (4)
  - Pain in extremity [Recovering/Resolving]
  - Drug abuse [Not Recovered/Not Resolved]
  - Off label use [Recovered/Resolved with Sequelae]
  - Oedema [Recovering/Resolving]

NARRATIVE: CASE EVENT DATE: 20230201
